FAERS Safety Report 10469416 (Version 1)
Quarter: 2014Q3

REPORT INFORMATION
  Report Type: Spontaneous
  Country: US (occurrence: None)
  Receive Date: 20140903
  Receipt Date: 20140903
  Transmission Date: 20150326
  Serious: Yes (Hospitalization)
  Sender: FDA-Public Use
  Company Number: 1420970

PATIENT
  Age: 81 Year
  Sex: Male

DRUGS (3)
  1. ACETAMINOPHEN (PARACETAMOL) [Concomitant]
     Active Substance: ACETAMINOPHEN
  2. DECADRON [Concomitant]
     Active Substance: DEXAMETHASONE
  3. GAZYVA [Suspect]
     Active Substance: OBINUTUZUMAB
     Indication: CHRONIC LYMPHOCYTIC LEUKAEMIA
     Dates: start: 20140616

REACTIONS (3)
  - Pyrexia [None]
  - Tremor [None]
  - Hot flush [None]

NARRATIVE: CASE EVENT DATE: 20140616
